FAERS Safety Report 8991001 (Version 1)
Quarter: 2012Q4

REPORT INFORMATION
  Report Type: Spontaneous
  Country: US (occurrence: None)
  Receive Date: 20121220
  Receipt Date: 20121220
  Transmission Date: 20130627
  Serious: Yes (Disabling)
  Sender: FDA-Public Use
  Company Number: US-DEXPHARM-20121856

PATIENT
  Sex: Female
  Weight: 68.93 kg

DRUGS (11)
  1. OMEPRAZOLE DELAYED RELEASE [Suspect]
     Indication: ACID REFLUX (OESOPHAGEAL)
     Route: 048
     Dates: start: 20080304
  2. METOPROLOL [Suspect]
     Indication: BLOOD PRESSURE HIGH
     Route: 048
     Dates: start: 2007
  3. PROBIOTICS [Suspect]
     Route: 048
     Dates: start: 201206
  4. CALTRATE [Suspect]
     Route: 048
     Dates: start: 2010
  5. BIOTIN [Suspect]
     Route: 048
     Dates: start: 201109
  6. OMEGA 3 [Suspect]
     Route: 048
     Dates: start: 201201
  7. SUPER B COMPLEX [Suspect]
     Route: 048
     Dates: start: 201109
  8. CENTRUM SILVER [Suspect]
     Route: 048
     Dates: start: 2002
  9. COLACE [Suspect]
     Route: 048
     Dates: start: 201206
  10. PRAVASTATIN [Suspect]
     Indication: HIGH CHOLESTEROL
     Route: 048
     Dates: start: 2007
  11. SPIRONOLACTONE W/HYDROCHLOROTHIAZIDE [Suspect]
     Indication: EDEMA
     Dosage: (DF)
     Route: 048
     Dates: start: 1992

REACTIONS (2)
  - Blindness transient [None]
  - Transient ischaemic attack [None]
